FAERS Safety Report 9647766 (Version 1)
Quarter: 2013Q4

REPORT INFORMATION
  Report Type: Spontaneous
  Country: FR (occurrence: FR)
  Receive Date: 20131028
  Receipt Date: 20131028
  Transmission Date: 20140711
  Serious: No
  Sender: FDA-Public Use
  Company Number: FR-JNJFOC-20131013174

PATIENT
  Age: 47 Year
  Sex: Male

DRUGS (2)
  1. DUROGESIC [Suspect]
     Indication: PRODUCT USED FOR UNKNOWN INDICATION
     Route: 062
  2. SUBUTEX [Interacting]
     Indication: PRODUCT USED FOR UNKNOWN INDICATION
     Route: 048

REACTIONS (3)
  - Contraindication to medical treatment [Unknown]
  - Drug prescribing error [Unknown]
  - Drug interaction [Unknown]
